FAERS Safety Report 7056322-1 (Version None)
Quarter: 2010Q4

REPORT INFORMATION
  Report Type: 
  Country: None (occurrence: None)
  Receive Date: 20101021
  Receipt Date: 20101019
  Transmission Date: 20110411
  Serious: Yes (Other)
  Sender: FDA-Public Use
  Company Number: NL-ROXANE LABORATORIES, INC.-2010-RO-01398RO

PATIENT
  Age: 36 Year
  Sex: Male

DRUGS (3)
  1. CITALOPRAM HYDROBROMIDE [Suspect]
     Indication: PANIC DISORDER
     Dosage: 20 MG
  2. CITALOPRAM HYDROBROMIDE [Suspect]
     Dosage: 30 MG
  3. CITALOPRAM HYDROBROMIDE [Suspect]
     Dosage: 60 MG

REACTIONS (6)
  - DIPLOPIA [None]
  - LOSS OF LIBIDO [None]
  - PARADOXICAL DRUG REACTION [None]
  - PARAESTHESIA [None]
  - RASH [None]
  - THERAPEUTIC RESPONSE UNEXPECTED [None]
